FAERS Safety Report 13841381 (Version 1)
Quarter: 2017Q3

REPORT INFORMATION
  Report Type: Spontaneous
  Country: FR (occurrence: FR)
  Receive Date: 20170807
  Receipt Date: 20170807
  Transmission Date: 20171127
  Serious: Yes (Other)
  Sender: FDA-Public Use
  Company Number: FR-MERCK KGAA-2024296

PATIENT
  Age: 52 Year
  Sex: Female

DRUGS (1)
  1. NOVOTHYROX [Suspect]
     Active Substance: LEVOTHYROXINE SODIUM
     Indication: HYPOTHYROIDISM
     Dates: start: 20170619, end: 20170712

REACTIONS (5)
  - Irritability [Recovered/Resolved]
  - Gastrointestinal pain [Recovered/Resolved]
  - Tachycardia [Recovered/Resolved]
  - Fatigue [Recovered/Resolved]
  - Depression [Recovered/Resolved]

NARRATIVE: CASE EVENT DATE: 20170710
